FAERS Safety Report 25867720 (Version 1)
Quarter: 2025Q4

REPORT INFORMATION
  Report Type: Spontaneous
  Country: TW (occurrence: TW)
  Receive Date: 20251001
  Receipt Date: 20251001
  Transmission Date: 20260118
  Serious: Yes (Death, Other)
  Sender: UCB
  Company Number: TW-GSK-TW2025APC120373

PATIENT
  Age: 71 Year
  Sex: Female

DRUGS (12)
  1. LEVETIRACETAM [Suspect]
     Active Substance: LEVETIRACETAM
     Indication: Colorectal cancer
     Dosage: UNK
  2. LEVETIRACETAM [Suspect]
     Active Substance: LEVETIRACETAM
     Indication: Chronic kidney disease
  3. LEVETIRACETAM [Suspect]
     Active Substance: LEVETIRACETAM
     Indication: Pneumonia
  4. LEVETIRACETAM [Suspect]
     Active Substance: LEVETIRACETAM
     Indication: Sepsis
  5. ASPIRIN [Suspect]
     Active Substance: ASPIRIN
     Indication: Colorectal cancer
     Dosage: UNK
  6. ASPIRIN [Suspect]
     Active Substance: ASPIRIN
     Indication: Chronic kidney disease
  7. ASPIRIN [Suspect]
     Active Substance: ASPIRIN
     Indication: Pneumonia
  8. ASPIRIN [Suspect]
     Active Substance: ASPIRIN
     Indication: Sepsis
  9. FLOMOXEF [Suspect]
     Active Substance: FLOMOXEF
     Indication: Colorectal cancer
     Dosage: UNK
  10. FLOMOXEF [Suspect]
     Active Substance: FLOMOXEF
     Indication: Chronic kidney disease
  11. FLOMOXEF [Suspect]
     Active Substance: FLOMOXEF
     Indication: Pneumonia
  12. FLOMOXEF [Suspect]
     Active Substance: FLOMOXEF
     Indication: Sepsis

REACTIONS (2)
  - Stevens-Johnson syndrome [Fatal]
  - Product use in unapproved indication [Unknown]
